FAERS Safety Report 17973485 (Version 2)
Quarter: 2020Q3

REPORT INFORMATION
  Report Type: Spontaneous
  Country: JP (occurrence: JP)
  Receive Date: 20200702
  Receipt Date: 20200902
  Transmission Date: 20201103
  Serious: Yes (Other)
  Sender: FDA-Public Use
  Company Number: JP-TEVA-2020-JP-1797609

PATIENT
  Age: 8 Decade
  Sex: Female

DRUGS (3)
  1. AZILECT [Suspect]
     Active Substance: RASAGILINE MESYLATE
     Dosage: 1 MILLIGRAM DAILY;
     Route: 048
  2. AZILECT [Suspect]
     Active Substance: RASAGILINE MESYLATE
     Dosage: .5 MILLIGRAM DAILY;
     Route: 048
  3. AZILECT [Suspect]
     Active Substance: RASAGILINE MESYLATE
     Indication: PARKINSON^S DISEASE
     Dosage: .5 MILLIGRAM DAILY;
     Route: 048

REACTIONS (1)
  - Autonomic neuropathy [Unknown]
